FAERS Safety Report 6063040-5 (Version None)
Quarter: 2009Q1

REPORT INFORMATION
  Report Type: 
  Country: None (occurrence: None)
  Receive Date: 20090129
  Receipt Date: 20090115
  Transmission Date: 20090719
  Serious: Yes (Other)
  Sender: FDA-Public Use
  Company Number: 2009S1000835

PATIENT
  Age: 68 Year
  Sex: Female
  Weight: 70 kg

DRUGS (9)
  1. LORAZEPAM [Suspect]
     Indication: DRUG USE FOR UNKNOWN INDICATION
     Dosage: 1 MG, ORAL
     Route: 048
     Dates: start: 20081201
  2. NEBIVOLOL [Concomitant]
  3. COTRIM [Concomitant]
  4. VIGANTOLETTEN [Concomitant]
  5. CALCIUM [Concomitant]
  6. DIOVAN HCT [Concomitant]
  7. NEXIUM [Concomitant]
  8. TROMCARDIN [Concomitant]
  9. MARCUMAR [Concomitant]

REACTIONS (3)
  - ARRHYTHMIA [None]
  - CHEST DISCOMFORT [None]
  - HYPERVIGILANCE [None]
